FAERS Safety Report 9001261 (Version 1)
Quarter: 2013Q1

REPORT INFORMATION
  Report Type: Spontaneous
  Country: US (occurrence: US)
  Receive Date: 20130107
  Receipt Date: 20130107
  Transmission Date: 20140127
  Serious: Yes (Hospitalization)
  Sender: FDA-Public Use
  Company Number: US-BAYER-2013-000262

PATIENT
  Age: 64 Year
  Sex: Male
  Weight: 56.69 kg

DRUGS (8)
  1. BETASERON [Suspect]
     Dosage: 0.25 MG, QOD
     Route: 058
  2. AMANTADINE [Concomitant]
     Dosage: UNK MG, UNK
  3. BACLOFEN [Concomitant]
  4. GABAPENTIN [Concomitant]
  5. REBIF [Concomitant]
  6. MULTIVITAMIN [Concomitant]
  7. CALCIUM [Concomitant]
  8. DOCUSATE CALCIUM [Concomitant]

REACTIONS (2)
  - Streptococcal infection [Recovered/Resolved]
  - Staphylococcal infection [Recovered/Resolved]
